FAERS Safety Report 24272299 (Version 2)
Quarter: 2024Q3

REPORT INFORMATION
  Report Type: Spontaneous
  Country: JP (occurrence: JP)
  Receive Date: 20240902
  Receipt Date: 20240930
  Transmission Date: 20241017
  Serious: Yes (Hospitalization, Other)
  Sender: GLAXOSMITHKLINE
  Company Number: JP-GLAXOSMITHKLINE-JP2024JPN105801

PATIENT

DRUGS (3)
  1. LAMICTAL [Suspect]
     Active Substance: LAMOTRIGINE
     Indication: Epilepsy
     Dosage: UNK
     Dates: start: 20211110, end: 20211211
  2. LAMICTAL [Suspect]
     Active Substance: LAMOTRIGINE
     Dosage: 50 MG, BID
     Route: 048
     Dates: start: 20211212
  3. LEVOTHYROXINE SODIUM [Concomitant]
     Active Substance: LEVOTHYROXINE SODIUM
     Indication: Hypothyroidism
     Dosage: 50 ?G
     Route: 048

REACTIONS (19)
  - Stevens-Johnson syndrome [Recovered/Resolved]
  - Drug eruption [Unknown]
  - Refeeding syndrome [Recovered/Resolved]
  - Hyponatraemia [Unknown]
  - Depressed level of consciousness [Recovered/Resolved]
  - Malnutrition [Unknown]
  - Pyrexia [Recovered/Resolved]
  - Erythema [Unknown]
  - Skin erosion [Recovered/Resolved]
  - Hypophagia [Unknown]
  - Oral mucosa erosion [Recovered/Resolved]
  - Haemorrhage [Unknown]
  - Blood phosphorus decreased [Unknown]
  - Hyperventilation [Unknown]
  - Oral mucosal eruption [Unknown]
  - Hunger [Unknown]
  - Rash [Recovered/Resolved]
  - Pruritus [Recovered/Resolved]
  - Skin exfoliation [Recovered/Resolved]

NARRATIVE: CASE EVENT DATE: 20211201
